FAERS Safety Report 4389823-0 (Version None)
Quarter: 2004Q2

REPORT INFORMATION
  Report Type: 
  Country: None (occurrence: None)
  Receive Date: 20040628
  Receipt Date: 20040620
  Transmission Date: 20050107
  Serious: Yes (Other)
  Sender: FDA-Public Use
  Company Number: 2004041291

PATIENT
  Age: 42 Year
  Sex: Male

DRUGS (1)
  1. ZANTAC 75 [Suspect]
     Dosage: 1 TAB ONCE, ORAL
     Route: 048
     Dates: start: 20040616, end: 20040616

REACTIONS (3)
  - BLOOD PRESSURE INCREASED [None]
  - HEART RATE INCREASED [None]
  - STOMACH DISCOMFORT [None]
